FAERS Safety Report 24394584 (Version 2)
Quarter: 2025Q3

REPORT INFORMATION
  Report Type: Spontaneous
  Country: CA (occurrence: CA)
  Receive Date: 20241004
  Receipt Date: 20250809
  Transmission Date: 20251021
  Serious: Yes (Death, Other)
  Sender: ALEXION PHARMACEUTICALS
  Company Number: CA-AstraZeneca-CH-00710740A

PATIENT
  Age: 36 Year
  Sex: Female

DRUGS (69)
  1. QUETIAPINE FUMARATE [Suspect]
     Active Substance: QUETIAPINE FUMARATE
     Indication: Product used for unknown indication
  2. ABACAVIR SULFATE [Suspect]
     Active Substance: ABACAVIR SULFATE
     Route: 050
  3. ABACAVIR\LAMIVUDINE [Suspect]
     Active Substance: ABACAVIR\LAMIVUDINE
  4. ACTEMRA [Suspect]
     Active Substance: TOCILIZUMAB
     Route: 065
  5. ADVAIR HFA [Suspect]
     Active Substance: FLUTICASONE PROPIONATE\SALMETEROL XINAFOATE
     Route: 065
  6. ALPRAZOLAM [Suspect]
     Active Substance: ALPRAZOLAM
     Route: 065
  7. CLONIDINE [Suspect]
     Active Substance: CLONIDINE
     Route: 065
  8. CODEINE [Suspect]
     Active Substance: CODEINE
     Route: 065
  9. CRINONE [Suspect]
     Active Substance: PROGESTERONE
     Route: 065
  10. DEMEROL [Suspect]
     Active Substance: MEPERIDINE HYDROCHLORIDE
     Route: 065
  11. DICLOFENAC POTASSIUM [Suspect]
     Active Substance: DICLOFENAC POTASSIUM
     Route: 065
  12. DICLOFENAC SODIUM [Suspect]
     Active Substance: DICLOFENAC SODIUM
     Route: 065
  13. DIPHENHYDRAMINE [Suspect]
     Active Substance: DIPHENHYDRAMINE
     Route: 065
  14. DOLUTEGRAVIR SODIUM [Suspect]
     Active Substance: DOLUTEGRAVIR SODIUM
     Route: 065
  15. ENBREL [Suspect]
     Active Substance: ETANERCEPT
     Route: 065
  16. ACETAMINOPHEN [Suspect]
     Active Substance: ACETAMINOPHEN
  17. ABACAVIR SULFATE\DOLUTEGRAVIR SODIUM\LAMIVUDINE [Suspect]
     Active Substance: ABACAVIR SULFATE\DOLUTEGRAVIR SODIUM\LAMIVUDINE
  18. ACETAMINOPHEN AND CODEINE [Suspect]
     Active Substance: ACETAMINOPHEN\CODEINE PHOSPHATE
  19. OXYCODONE AND ACETAMINOPHEN [Suspect]
     Active Substance: ACETAMINOPHEN\OXYCODONE HYDROCHLORIDE
  20. DICLOFENAC POTASSIUM [Suspect]
     Active Substance: DICLOFENAC POTASSIUM
  21. BUPROPION [Suspect]
     Active Substance: BUPROPION
  22. SENNOSIDES A AND B [Suspect]
     Active Substance: SENNOSIDES A AND B
  23. CETIRIZINE [Suspect]
     Active Substance: CETIRIZINE HYDROCHLORIDE
  24. CHLORMEZANONE [Suspect]
     Active Substance: CHLORMEZANONE
  25. CITALOPRAM HYDROBROMIDE [Suspect]
     Active Substance: CITALOPRAM HYDROBROMIDE
  26. CODEINE PHOSPHATE\GUAIFENESIN\PSEUDOEPHEDRINE HYDROCHLORIDE [Suspect]
     Active Substance: CODEINE PHOSPHATE\GUAIFENESIN\PSEUDOEPHEDRINE HYDROCHLORIDE
  27. CYCLOBENZAPRINE [Suspect]
     Active Substance: CYCLOBENZAPRINE
  28. DIPHENHYDRAMINE [Suspect]
     Active Substance: DIPHENHYDRAMINE
  29. FLOVENT [Suspect]
     Active Substance: FLUTICASONE PROPIONATE
  30. FLUCONAZOLE [Suspect]
     Active Substance: FLUCONAZOLE
  31. FLUTICASONE PROPIONATE [Suspect]
     Active Substance: FLUTICASONE PROPIONATE
  32. FLUTICASONE PROPIONATE\SALMETEROL XINAFOATE [Suspect]
     Active Substance: FLUTICASONE PROPIONATE\SALMETEROL XINAFOATE
  33. FUROSEMIDE [Suspect]
     Active Substance: FUROSEMIDE
  34. GABAPENTIN [Suspect]
     Active Substance: GABAPENTIN
  35. HUMIRA [Suspect]
     Active Substance: ADALIMUMAB
  36. HYDROMORPHONE [Suspect]
     Active Substance: HYDROMORPHONE
  37. KETOPROFEN [Suspect]
     Active Substance: KETOPROFEN
  38. LAMIVUDINE [Suspect]
     Active Substance: LAMIVUDINE
  39. HERBALS\SENNA LEAF\SENNOSIDES [Suspect]
     Active Substance: HERBALS\SENNA LEAF\SENNOSIDES
  40. LYRICA [Suspect]
     Active Substance: PREGABALIN
  41. METHYLPREDNISOLONE SODIUM SUCCINATE [Suspect]
     Active Substance: METHYLPREDNISOLONE SODIUM SUCCINATE
  42. METHYLPREDNISOLONE ACETATE [Suspect]
     Active Substance: METHYLPREDNISOLONE ACETATE
  43. PREDNISOLONE SODIUM PHOSPHATE [Suspect]
     Active Substance: PREDNISOLONE SODIUM PHOSPHATE
  44. MONTELUKAST SODIUM [Suspect]
     Active Substance: MONTELUKAST SODIUM
  45. MORPHINE SULFATE [Suspect]
     Active Substance: MORPHINE SULFATE
  46. MOXIFLOXACIN HYDROCHLORIDE [Suspect]
     Active Substance: MOXIFLOXACIN HYDROCHLORIDE
  47. NORTRIPTYLINE [Suspect]
     Active Substance: NORTRIPTYLINE
  48. ONDANSETRON HYDROCHLORIDE [Suspect]
     Active Substance: ONDANSETRON HYDROCHLORIDE
  49. ORENCIA [Suspect]
     Active Substance: ABATACEPT
  50. PANTOPRAZOLE MAGNESIUM [Suspect]
     Active Substance: PANTOPRAZOLE MAGNESIUM
  51. PANTOPRAZOLE SODIUM [Suspect]
     Active Substance: PANTOPRAZOLE SODIUM
  52. HERBALS\PLANTAGO OVATA LEAF [Suspect]
     Active Substance: HERBALS\PLANTAGO OVATA LEAF
  53. PROGESTERONE [Suspect]
     Active Substance: PROGESTERONE
  54. RANITIDINE HYDROCHLORIDE [Suspect]
     Active Substance: RANITIDINE HYDROCHLORIDE
  55. REMICADE [Suspect]
     Active Substance: INFLIXIMAB
  56. RESTORIL [Suspect]
     Active Substance: TEMAZEPAM
  57. RITUXIMAB [Suspect]
     Active Substance: RITUXIMAB
  58. ALBUTEROL [Suspect]
     Active Substance: ALBUTEROL
  59. DICLOFENAC SODIUM [Suspect]
     Active Substance: DICLOFENAC SODIUM
  60. SENNA LEAF [Suspect]
     Active Substance: SENNA LEAF
  61. SENOKOT [Suspect]
     Active Substance: SENNOSIDES
  62. PANTOPRAZOLE MAGNESIUM [Suspect]
     Active Substance: PANTOPRAZOLE MAGNESIUM
  63. TEMAZEPAM [Suspect]
     Active Substance: TEMAZEPAM
  64. TYLENOL [Suspect]
     Active Substance: ACETAMINOPHEN
  65. VENLAFAXINE HYDROCHLORIDE [Suspect]
     Active Substance: VENLAFAXINE HYDROCHLORIDE
  66. DIETARY SUPPLEMENT [Suspect]
     Active Substance: DIETARY SUPPLEMENT
  67. WELLBUTRIN [Suspect]
     Active Substance: BUPROPION HYDROCHLORIDE
  68. XELJANZ [Suspect]
     Active Substance: TOFACITINIB CITRATE
  69. ZOPICLONE [Suspect]
     Active Substance: ZOPICLONE

REACTIONS (38)
  - Asthma [Fatal]
  - Back pain [Fatal]
  - Bursitis [Fatal]
  - Coeliac disease [Fatal]
  - Constipation [Fatal]
  - Erythema [Fatal]
  - Drug hypersensitivity [Fatal]
  - Drug ineffective [Fatal]
  - Drug intolerance [Fatal]
  - Contraindicated product administered [Fatal]
  - Exposure during pregnancy [Fatal]
  - Fatigue [Fatal]
  - Fluid retention [Fatal]
  - Foetal death [Fatal]
  - Food allergy [Fatal]
  - Headache [Fatal]
  - Hepatic enzyme increased [Fatal]
  - Hyperhidrosis [Fatal]
  - Hypersensitivity [Fatal]
  - Hypertension [Fatal]
  - Immunodeficiency [Fatal]
  - Infusion related reaction [Fatal]
  - Intentional product misuse [Fatal]
  - Joint swelling [Fatal]
  - Off label use [Fatal]
  - Overdose [Fatal]
  - Pain [Fatal]
  - Prescribed overdose [Fatal]
  - Product use issue [Fatal]
  - Psoriasis [Fatal]
  - Pyrexia [Fatal]
  - Rash [Fatal]
  - Rash erythematous [Fatal]
  - Rheumatoid arthritis [Fatal]
  - Temperature regulation disorder [Fatal]
  - Thrombocytopenia [Fatal]
  - Treatment failure [Fatal]
  - Upper respiratory tract infection [Fatal]
